FAERS Safety Report 8732545 (Version 2)
Quarter: 2015Q2

REPORT INFORMATION
  Report Type: Report from Study
  Country: US (occurrence: US)
  Receive Date: 20120820
  Receipt Date: 20150626
  Transmission Date: 20150821
  Serious: Yes (Hospitalization, Other)
  Sender: FDA-Public Use
  Company Number: US-ROCHE-1101408

PATIENT
  Sex: Male

DRUGS (14)
  1. ACTIVASE [Suspect]
     Active Substance: ALTEPLASE
     Indication: MYOCARDIAL INFARCTION
     Route: 040
  2. ZANTAC [Concomitant]
     Active Substance: RANITIDINE HYDROCHLORIDE
     Route: 048
  3. HEPARIN [Concomitant]
     Active Substance: HEPARIN SODIUM
     Dosage: 5000 UNITS
     Route: 040
  4. NITROGLYCERIN. [Concomitant]
     Active Substance: NITROGLYCERIN
     Route: 065
  5. ACTIVASE [Suspect]
     Active Substance: ALTEPLASE
     Route: 040
  6. NITROGLYCERIN. [Concomitant]
     Active Substance: NITROGLYCERIN
     Route: 065
  7. MAGNESIUM SULFATE. [Concomitant]
     Active Substance: MAGNESIUM SULFATE
     Route: 042
  8. MAGNESIUM SULFATE. [Concomitant]
     Active Substance: MAGNESIUM SULFATE
     Route: 042
  9. HEPARIN [Concomitant]
     Active Substance: HEPARIN SODIUM
     Dosage: 1000 UNITS
     Route: 041
  10. CHLORAL HYDRATE [Concomitant]
     Active Substance: CHLORAL HYDRATE
     Route: 048
  11. LOPRESSOR [Concomitant]
     Active Substance: METOPROLOL TARTRATE
     Route: 048
  12. LIDOCAINE. [Concomitant]
     Active Substance: LIDOCAINE
     Route: 042
  13. LIDOCAINE. [Concomitant]
     Active Substance: LIDOCAINE
     Route: 042
  14. ASPIRIN. [Concomitant]
     Active Substance: ASPIRIN
     Dosage: 10 GR
     Route: 048

REACTIONS (7)
  - Oedema peripheral [Unknown]
  - Gastrointestinal haemorrhage [Unknown]
  - Ventricular tachycardia [Unknown]
  - Chest pain [Unknown]
  - Dizziness [Unknown]
  - Restlessness [Unknown]
  - Ventricular extrasystoles [Unknown]
